FAERS Safety Report 7814795-8 (Version None)
Quarter: 2011Q4

REPORT INFORMATION
  Report Type: 
  Country: None (occurrence: None)
  Receive Date: 20111013
  Receipt Date: 20111013
  Transmission Date: 20120403
  Serious: No
  Sender: FDA-Public Use
  Company Number: None

PATIENT
  Sex: Male

DRUGS (1)
  1. ENBREL [Suspect]
     Indication: RHEUMATOID ARTHRITIS
     Dosage: 50 MG QWEEK SQ
     Route: 058
     Dates: start: 20110414, end: 20111007

REACTIONS (2)
  - CHEST PAIN [None]
  - INSOMNIA [None]
